FAERS Safety Report 20817896 (Version 4)
Quarter: 2022Q3

REPORT INFORMATION
  Report Type: Spontaneous
  Country: IE (occurrence: IE)
  Receive Date: 20220512
  Receipt Date: 20220924
  Transmission Date: 20221027
  Serious: Yes (Hospitalization, Disabling, Other)
  Sender: FDA-Public Use
  Company Number: None

PATIENT
  Age: 14 Year
  Sex: Female

DRUGS (34)
  1. ARIPIPRAZOLE [Suspect]
     Active Substance: ARIPIPRAZOLE
     Indication: Autism spectrum disorder
     Dosage: THE DOSE RANGE WAS 2.5MG TO 7.5MG PER DAY
     Route: 048
     Dates: start: 20190717
  2. DIAZEPAM [Suspect]
     Active Substance: DIAZEPAM
     Indication: Depressed mood
     Dosage: 2MG UP TO 3 TIMES DAILY, PRN- NEARLY EVERY SCHOOL DAY
     Route: 048
     Dates: start: 20191119, end: 20200115
  3. FLUOXETINE [Suspect]
     Active Substance: FLUOXETINE HYDROCHLORIDE
     Indication: Depressed mood
     Dosage: PROZAMEL 20MG, ONE DAILY
     Dates: start: 20201101, end: 20210828
  4. MEFENAMIC ACID [Concomitant]
     Active Substance: MEFENAMIC ACID
     Dosage: HALF OR ONE TABLET THREE TIMES DAILY
     Route: 048
     Dates: start: 20200616
  5. MELATONIN [Concomitant]
     Active Substance: MELATONIN
     Dosage: CIRCADIN/MELATONIN ULM: 2 (2MG) CAPSULES AT NIGHT
     Route: 048
     Dates: start: 20191109
  6. DROSPIRENONE\ETHINYL ESTRADIOL [Concomitant]
     Active Substance: DROSPIRENONE\ETHINYL ESTRADIOL
     Dosage: STRENGTH 20MCG
     Dates: start: 20201030
  7. OLANZAPINE [Concomitant]
     Active Substance: OLANZAPINE
     Dosage: 2.5MG IN THE MORNING, 5 MG AT 5PM
     Route: 048
     Dates: start: 20200630
  8. RITALIN [Concomitant]
     Active Substance: METHYLPHENIDATE HYDROCHLORIDE
     Dosage: IN THE EVENING, 10MG
     Dates: start: 20201009
  9. CONCERTA [Concomitant]
     Active Substance: METHYLPHENIDATE HYDROCHLORIDE
     Dosage: IN THE MORNING, 18 MG
     Dates: start: 20200316
  10. CLOTRIMAZOLE [Concomitant]
     Active Substance: CLOTRIMAZOLE
     Dosage: 1% W / W + 1% W / W, THREE TIME DAILY
     Dates: start: 20201030
  11. SERTRALINE [Concomitant]
     Active Substance: SERTRALINE HYDROCHLORIDE
     Dosage: INCREASING DOSE, HYPROMELLOSE STRENGTH 2.806 MG, SERTRALINE STRENGTH 50 MG
     Route: 048
     Dates: start: 20191109, end: 20191119
  12. RIVOTRIL [Concomitant]
     Active Substance: CLONAZEPAM
     Dosage: STRENGTH:  0.5MG
     Dates: start: 20200622
  13. LISDEXAMFETAMINE DIMESYLATE [Concomitant]
     Active Substance: LISDEXAMFETAMINE DIMESYLATE
     Dosage: IN THE MORNING, 20MG
     Dates: start: 20200710
  14. CHOLECALCIFEROL [Concomitant]
     Active Substance: CHOLECALCIFEROL
     Dosage: 25,000 INTERNATIONAL, EVERY TWO WEEKS THEN ONCE PER MONTH
     Dates: start: 20191204
  15. CLOTRIMAZOLE [Concomitant]
     Active Substance: CLOTRIMAZOLE
     Dosage: 1% W / W + 1% W / W, THREE TIME DAILY
     Dates: start: 20201126
  16. LISDEXAMFETAMINE DIMESYLATE [Concomitant]
     Active Substance: LISDEXAMFETAMINE DIMESYLATE
     Dosage: IN THE MORNING, 20MG
     Dates: start: 20210301
  17. LISDEXAMFETAMINE DIMESYLATE [Concomitant]
     Active Substance: LISDEXAMFETAMINE DIMESYLATE
     Dosage: IN THE MORNING, 20MG
     Dates: start: 20201109
  18. LISDEXAMFETAMINE DIMESYLATE [Concomitant]
     Active Substance: LISDEXAMFETAMINE DIMESYLATE
     Dosage: IN THE MORNING, 20MG
     Dates: start: 20200623
  19. LISDEXAMFETAMINE DIMESYLATE [Concomitant]
     Active Substance: LISDEXAMFETAMINE DIMESYLATE
     Dosage: IN THE MORNING, 20MG
     Dates: start: 20200722
  20. ARIPIPRAZOLE [Suspect]
     Active Substance: ARIPIPRAZOLE
     Indication: Autism spectrum disorder
     Route: 048
     Dates: start: 20200131, end: 20200519
  21. ARIPIPRAZOLE [Suspect]
     Active Substance: ARIPIPRAZOLE
     Indication: Autism spectrum disorder
     Dosage: ONE TABLET TWICE DAILY AND HALF AT NIGHT
     Route: 048
     Dates: start: 20191105
  22. MELATONIN [Concomitant]
     Active Substance: MELATONIN
     Dosage: ONE OR TWO TO BE TAKEN AT NIGHT ON WITHDRAWAL OF DIAZEPAM WAS REQUIRED AN INCREASE OF MELATONIN
     Dates: start: 20200324
  23. FLUOXETINE [Suspect]
     Active Substance: FLUOXETINE HYDROCHLORIDE
     Indication: Depressed mood
     Dosage: PROZAC ORAL SOLUTION 7.5ML (30MG) IN THE MORNING
     Dates: start: 20191122
  24. FLUOXETINE [Suspect]
     Active Substance: FLUOXETINE HYDROCHLORIDE
     Indication: Depressed mood
     Dosage: PROZAMEL 20MG, TWO CAPSULES IN THE MORNING
     Dates: start: 20200905
  25. FLUOXETINE [Suspect]
     Active Substance: FLUOXETINE HYDROCHLORIDE
     Indication: Depressed mood
     Dosage: PROZAC CAPSULES 20MG, TWO IN THE MORNING
     Dates: start: 20200227, end: 20210828
  26. FLUOXETINE [Suspect]
     Active Substance: FLUOXETINE HYDROCHLORIDE
     Indication: Depressed mood
     Dosage: PROZAC CAPSULES 20MG
     Dates: start: 20191119
  27. FLUOXETINE [Suspect]
     Active Substance: FLUOXETINE HYDROCHLORIDE
     Indication: Depressed mood
     Dosage: FLUZAC 20 MG, TWO CAPSULES IN THE MORNING
     Dates: start: 20200519
  28. FLUOXETINE [Suspect]
     Active Substance: FLUOXETINE HYDROCHLORIDE
     Indication: Depressed mood
     Dosage: PROZAC ORAL SOLUTION 20MG / 5ML: 2.5ML (10MG) IN THE MORNING
     Route: 048
     Dates: start: 20191109
  29. CONCERTA [Concomitant]
     Active Substance: METHYLPHENIDATE HYDROCHLORIDE
     Dosage: IN THE MORNING
     Dates: start: 20200228
  30. CONCERTA [Concomitant]
     Active Substance: METHYLPHENIDATE HYDROCHLORIDE
     Dosage: IN THE MORNING, 18 MG
     Dates: start: 20200124
  31. CONCERTA [Concomitant]
     Active Substance: METHYLPHENIDATE HYDROCHLORIDE
     Dosage: IN THE MORNING,
     Dates: start: 20200602
  32. ARIPIPRAZOLE [Suspect]
     Active Substance: ARIPIPRAZOLE
     Indication: Autism spectrum disorder
     Dosage: ONE TABLET TWICE DAILY AND HALF AT NIGHT
     Dates: start: 20191109, end: 20200519
  33. LISDEXAMFETAMINE DIMESYLATE [Concomitant]
     Active Substance: LISDEXAMFETAMINE DIMESYLATE
     Dosage: IN THE MORNING, 20MG
     Dates: start: 20210401
  34. DIAZEPAM [Suspect]
     Active Substance: DIAZEPAM
     Indication: Depressed mood
     Dosage: THE DOSE RANGE 2.5MG TO 6MG PER DAY
     Route: 048
     Dates: start: 201909

REACTIONS (15)
  - Weight increased [Recovered/Resolved]
  - Social anxiety disorder [Recovering/Resolving]
  - Drug interaction [Unknown]
  - Hyperphagia [Recovered/Resolved]
  - Impulse-control disorder [Recovered/Resolved]
  - Hypersexuality [Recovered/Resolved]
  - Oropharyngeal pain [Recovered/Resolved]
  - Agitation [Recovered/Resolved]
  - Personality change [Recovered/Resolved]
  - Suicidal ideation [Recovered/Resolved]
  - Theft [Unknown]
  - Intentional self-injury [Recovered/Resolved]
  - Body dysmorphic disorder [Recovered/Resolved]
  - Vomiting [Recovered/Resolved]
  - Nausea [Recovered/Resolved]

NARRATIVE: CASE EVENT DATE: 20190901
